FAERS Safety Report 7250263-2 (Version None)
Quarter: 2011Q1

REPORT INFORMATION
  Report Type: 
  Country: None (occurrence: None)
  Receive Date: 20110128
  Receipt Date: 20100422
  Transmission Date: 20110831
  Serious: Yes (Other)
  Sender: FDA-Public Use
  Company Number: US-BAXTER-2010BH008921

PATIENT
  Age: 14 Year
  Sex: Male

DRUGS (2)
  1. RECOMBINATE [Suspect]
     Indication: FACTOR VIII DEFICIENCY
     Route: 042
     Dates: start: 19960206, end: 20040702
  2. RECOMBINATE [Suspect]
     Indication: HAEMORRHAGE
     Route: 042
     Dates: start: 19960206, end: 20040702

REACTIONS (1)
  - FACTOR VIII INHIBITION [None]
